FAERS Safety Report 24807995 (Version 1)
Quarter: 2025Q1

REPORT INFORMATION
  Report Type: Spontaneous
  Country: EG (occurrence: EG)
  Receive Date: 20250106
  Receipt Date: 20250106
  Transmission Date: 20250409
  Serious: Yes (Hospitalization, Other)
  Sender: NOVO NORDISK
  Company Number: EG-NOVOPROD-1342843

PATIENT
  Age: 593 Month
  Sex: Female
  Weight: 78 kg

DRUGS (4)
  1. SAXENDA [Suspect]
     Active Substance: LIRAGLUTIDE
     Route: 058
  2. SAXENDA [Suspect]
     Active Substance: LIRAGLUTIDE
     Indication: Obesity
     Route: 058
     Dates: start: 202308
  3. SAXENDA [Suspect]
     Active Substance: LIRAGLUTIDE
     Route: 058
  4. SAXENDA [Suspect]
     Active Substance: LIRAGLUTIDE
     Route: 058

REACTIONS (3)
  - Cholangitis [Recovered/Resolved]
  - Cholelithiasis [Recovered/Resolved]
  - Ligament rupture [Unknown]
